FAERS Safety Report 10512107 (Version 2)
Quarter: 2014Q4

REPORT INFORMATION
  Report Type: Spontaneous
  Country: US (occurrence: US)
  Receive Date: 20141010
  Receipt Date: 20141017
  Transmission Date: 20150528
  Serious: Yes (Death, Hospitalization)
  Sender: FDA-Public Use
  Company Number: US-B.I. PHARMACEUTICALS,INC./RIDGEFIELD-2014-BI-48377BP

PATIENT
  Age: 67 Year
  Sex: Male
  Weight: 32.21 kg

DRUGS (6)
  1. VENTOLIN [Concomitant]
     Active Substance: ALBUTEROL SULFATE
     Indication: PRODUCT USED FOR UNKNOWN INDICATION
     Route: 055
  2. ADVAIR HFA [Concomitant]
     Active Substance: FLUTICASONE PROPIONATE\SALMETEROL XINAFOATE
     Indication: DYSPNOEA
     Route: 055
  3. ANOTHER MEDICATION [Concomitant]
     Active Substance: UNSPECIFIED INGREDIENT
     Indication: DYSPNOEA
     Route: 065
  4. ALBUTEROL. [Concomitant]
     Active Substance: ALBUTEROL
     Indication: DYSPNOEA
     Route: 065
  5. NEBULIZER [Concomitant]
     Active Substance: UNSPECIFIED INGREDIENT
     Indication: DYSPNOEA
     Route: 065
  6. SPIRIVA [Suspect]
     Active Substance: TIOTROPIUM BROMIDE MONOHYDRATE
     Indication: CHRONIC OBSTRUCTIVE PULMONARY DISEASE
     Dosage: 18 MCG
     Route: 055
     Dates: start: 2009, end: 20140902

REACTIONS (3)
  - Chronic obstructive pulmonary disease [Fatal]
  - Pleural effusion [Unknown]
  - Pneumonia [Fatal]

NARRATIVE: CASE EVENT DATE: 201408
